FAERS Safety Report 6957342-5 (Version None)
Quarter: 2010Q3

REPORT INFORMATION
  Report Type: 
  Country: None (occurrence: None)
  Receive Date: 20100831
  Receipt Date: 20100809
  Transmission Date: 20110219
  Serious: No
  Sender: FDA-Public Use
  Company Number: US-BAYER-201030078NA

PATIENT
  Age: 61 Year
  Sex: Female
  Weight: 73 kg

DRUGS (12)
  1. BETASERON [Suspect]
     Indication: MULTIPLE SCLEROSIS
     Route: 065
  2. OXYBUTYNIN [Concomitant]
     Dosage: UNIT DOSE: 5 MG
  3. VYTORIN [Concomitant]
     Dosage: 10/10
  4. MIRALAX [Concomitant]
  5. CITRUCEL [Concomitant]
     Dosage: EVERY MORNING
  6. FIBERSOURCE [Concomitant]
     Dosage: WITH COFFEE
  7. OMEPRAZOLE [Concomitant]
  8. CALCIUM SUPPLEMENT [Concomitant]
  9. FISH OIL [Concomitant]
  10. DIAZEPAM [Concomitant]
     Indication: SLEEP DISORDER
  11. TYLENOL PM [Concomitant]
     Indication: SLEEP DISORDER
  12. AMPYRA [Concomitant]
     Indication: GAIT DISTURBANCE
     Dosage: 12 HOURS APART
     Route: 048
     Dates: start: 20100702

REACTIONS (1)
  - PARAESTHESIA ORAL [None]
